FAERS Safety Report 12321365 (Version 2)
Quarter: 2016Q2

REPORT INFORMATION
  Report Type: Report from Study
  Country: CA (occurrence: CA)
  Receive Date: 20160502
  Receipt Date: 20160621
  Transmission Date: 20160815
  Serious: Yes (Death, Other)
  Sender: FDA-Public Use
  Company Number: PHHY2013CA096992

PATIENT
  Age: 84 Year
  Sex: Female

DRUGS (6)
  1. SANDOSTATIN LAR DEPOT [Suspect]
     Active Substance: OCTREOTIDE ACETATE
     Dosage: 40 MG, QMO
     Route: 030
  2. SANDOSTATIN LAR DEPOT [Suspect]
     Active Substance: OCTREOTIDE ACETATE
     Dosage: 50 MG, EVERY 28 DAYS, EVERY 4 WEEKS (QMO)
     Route: 030
     Dates: start: 20150921
  3. SANDOSTATIN LAR DEPOT [Suspect]
     Active Substance: OCTREOTIDE ACETATE
     Indication: NEUROENDOCRINE TUMOUR
     Dosage: 30 MG, QMO
     Route: 030
     Dates: start: 20130906
  4. PANTOPRAZOLE [Concomitant]
     Active Substance: PANTOPRAZOLE SODIUM
     Indication: PRODUCT USED FOR UNKNOWN INDICATION
     Dosage: 40 MG, UNK
     Route: 065
  5. SANDOSTATIN LAR DEPOT [Suspect]
     Active Substance: OCTREOTIDE ACETATE
     Dosage: 60 MG, QMO (Q 28 DAYS)
     Route: 030
     Dates: start: 20151117, end: 20160413
  6. SANDOSTATIN [Suspect]
     Active Substance: OCTREOTIDE ACETATE
     Indication: NEUROENDOCRINE TUMOUR
     Dosage: 100 UG, TID FOR 10 DAYS
     Route: 058
     Dates: start: 20130828, end: 20130907

REACTIONS (28)
  - Death [Fatal]
  - Nasal congestion [Unknown]
  - Rhinorrhoea [Unknown]
  - Vomiting [Unknown]
  - Fall [Unknown]
  - Blood pressure increased [Unknown]
  - Abdominal distension [Recovered/Resolved]
  - Asthenia [Unknown]
  - Abdominal pain [Unknown]
  - Metastases to lung [Unknown]
  - Ear discomfort [Unknown]
  - Pain [Recovering/Resolving]
  - Speech disorder [Unknown]
  - Ecchymosis [Unknown]
  - Nausea [Unknown]
  - Headache [Unknown]
  - Injection site erythema [Recovered/Resolved]
  - Fatigue [Unknown]
  - Needle issue [Unknown]
  - Body temperature decreased [Unknown]
  - Gastrooesophageal reflux disease [Unknown]
  - Injection site hypersensitivity [Unknown]
  - Malignant neoplasm progression [Unknown]
  - Haematoma [Unknown]
  - Blood pressure systolic increased [Unknown]
  - Decreased appetite [Recovering/Resolving]
  - Oropharyngeal pain [Unknown]
  - Cough [Unknown]

NARRATIVE: CASE EVENT DATE: 2014
